FAERS Safety Report 9303042 (Version 1)
Quarter: 2013Q2

REPORT INFORMATION
  Report Type: Spontaneous
  Country: US (occurrence: None)
  Receive Date: 20130517
  Receipt Date: 20130517
  Transmission Date: 20140414
  Serious: Yes (Hospitalization)
  Sender: FDA-Public Use
  Company Number: 2013STPI000154

PATIENT
  Age: 73 Year
  Sex: Female

DRUGS (1)
  1. MATULANE [Suspect]
     Indication: LYMPHOMA
     Route: 048
     Dates: start: 20130307

REACTIONS (3)
  - Cholecystitis [None]
  - Caecitis [None]
  - Pyrexia [None]
